FAERS Safety Report 18339802 (Version 2)
Quarter: 2020Q4

REPORT INFORMATION
  Report Type: Report from Study
  Country: KW (occurrence: KW)
  Receive Date: 20201002
  Receipt Date: 20201127
  Transmission Date: 20210113
  Serious: Yes (Other)
  Sender: FDA-Public Use
  Company Number: KW-EMD SERONO-9188245

PATIENT
  Age: 32 Year
  Sex: Female

DRUGS (1)
  1. REBIF [Suspect]
     Active Substance: INTERFERON BETA-1A
     Indication: MULTIPLE SCLEROSIS
     Dosage: REBIF PREFILLED SYRINGE
     Dates: start: 20111103, end: 20200921

REACTIONS (6)
  - Dizziness [Unknown]
  - Fatigue [Unknown]
  - Multiple sclerosis [Unknown]
  - Maternal exposure during pregnancy [Unknown]
  - Headache [Unknown]
  - Pregnancy on contraceptive [Unknown]

NARRATIVE: CASE EVENT DATE: 2020
